FAERS Safety Report 14843104 (Version 1)
Quarter: 2018Q2

REPORT INFORMATION
  Report Type: Spontaneous
  Country: PL (occurrence: PL)
  Receive Date: 20180503
  Receipt Date: 20180503
  Transmission Date: 20180711
  Serious: Yes (Hospitalization, Other)
  Sender: FDA-Public Use
  Company Number: PHHY2017PL156565

PATIENT
  Age: 44 Year
  Sex: Female

DRUGS (10)
  1. ARECHIN [Concomitant]
     Active Substance: CHLOROQUINE PHOSPHATE
     Indication: LUPUS NEPHRITIS
     Dosage: UNK
     Route: 065
  2. ARECHIN [Concomitant]
     Active Substance: CHLOROQUINE PHOSPHATE
     Indication: SYSTEMIC LUPUS ERYTHEMATOSUS
  3. ARECHIN [Concomitant]
     Active Substance: CHLOROQUINE PHOSPHATE
     Indication: LUPUS NEPHRITIS
  4. CHLOROQUINE DIPHOSPHATE [Concomitant]
     Active Substance: CHLOROQUINE PHOSPHATE
     Indication: LUPUS NEPHRITIS
     Dosage: 40 MG, UNK
     Route: 048
  5. ACYCLOVIR. [Concomitant]
     Active Substance: ACYCLOVIR
     Dosage: UNK
     Route: 042
  6. GANCICLOVIR. [Concomitant]
     Active Substance: GANCICLOVIR
     Indication: PRODUCT USED FOR UNKNOWN INDICATION
     Dosage: 2MG/0.1 ML TWICE WEEKLY FOR 3 WEEKS
     Route: 065
  7. MYCOPHENOLATE MOFETIL. [Suspect]
     Active Substance: MYCOPHENOLATE MOFETIL
     Indication: LUPUS NEPHRITIS
     Dosage: 2 G, QD
     Route: 065
  8. PREDNISONE. [Suspect]
     Active Substance: PREDNISONE
     Indication: LUPUS NEPHRITIS
     Dosage: 40 MG, QD
     Route: 048
  9. PREDNISONE. [Suspect]
     Active Substance: PREDNISONE
     Dosage: 20 MG, UNK
     Route: 065
  10. ACYCLOVIR. [Concomitant]
     Active Substance: ACYCLOVIR
     Indication: PRODUCT USED FOR UNKNOWN INDICATION
     Dosage: UNK
     Route: 048

REACTIONS (5)
  - Product use in unapproved indication [Unknown]
  - Visual impairment [Unknown]
  - Necrotising herpetic retinopathy [Unknown]
  - Central nervous system lymphoma [Unknown]
  - Varicella zoster virus infection [Unknown]
